FAERS Safety Report 22138640 (Version 1)
Quarter: 2023Q1

REPORT INFORMATION
  Report Type: Spontaneous
  Country: US (occurrence: None)
  Receive Date: 20230326
  Receipt Date: 20230326
  Transmission Date: 20230418
  Serious: No
  Sender: FDA-Public Use
  Company Number: 2023A053142

PATIENT
  Age: 68 Year
  Weight: 98.9 kg

DRUGS (3)
  1. FARXIGA [Suspect]
     Active Substance: DAPAGLIFLOZIN PROPANEDIOL
     Indication: Cardiac failure
     Route: 048
  2. COREG [Concomitant]
     Active Substance: CARVEDILOL
     Indication: Cardiac failure
  3. ENTRESTO [Concomitant]
     Active Substance: SACUBITRIL\VALSARTAN
     Indication: Cardiac failure

REACTIONS (10)
  - Blood glucose decreased [Unknown]
  - Syncope [Unknown]
  - Dizziness [Unknown]
  - Blood cholesterol abnormal [Unknown]
  - Cardiac disorder [Unknown]
  - Hypotension [Unknown]
  - Condition aggravated [Unknown]
  - Asthenia [Unknown]
  - Tremor [Unknown]
  - Hunger [Unknown]

NARRATIVE: CASE EVENT DATE: 20220101
